FAERS Safety Report 4278336-7 (Version None)
Quarter: 2004Q1

REPORT INFORMATION
  Report Type: 
  Country: None (occurrence: None)
  Receive Date: 20040123
  Receipt Date: 20031028
  Transmission Date: 20041129
  Serious: Yes (Death, Other)
  Sender: FDA-Public Use
  Company Number: PHFR2003GB04137

PATIENT
  Age: 28 Year
  Sex: Male

DRUGS (1)
  1. CLOZARIL [Suspect]
     Indication: SCHIZOPHRENIA
     Route: 048
     Dates: start: 20010821

REACTIONS (5)
  - AGGRESSION [None]
  - DEATH [None]
  - DIABETES MELLITUS INSULIN-DEPENDENT [None]
  - DRUG LEVEL DECREASED [None]
  - REFUSAL OF TREATMENT BY PATIENT [None]
